FAERS Safety Report 24129826 (Version 1)
Quarter: 2024Q3

REPORT INFORMATION
  Report Type: Spontaneous
  Country: GB (occurrence: GB)
  Receive Date: 20240724
  Receipt Date: 20240724
  Transmission Date: 20241016
  Serious: Yes (Disabling, Other)
  Sender: DEXCEL
  Company Number: None

PATIENT

DRUGS (8)
  1. ERYTHROMYCIN [Suspect]
     Active Substance: ERYTHROMYCIN
     Indication: Infection
     Dates: start: 20240509
  2. METRONIDAZOLE [Suspect]
     Active Substance: METRONIDAZOLE
     Dates: start: 20240528
  3. DICLOFENAC [Suspect]
     Active Substance: DICLOFENAC
     Dates: start: 20240528
  4. COCODAMOL [Suspect]
     Active Substance: ACETAMINOPHEN\CODEINE PHOSPHATE
     Dosage: 30MG/500MG
     Dates: start: 20240529
  5. AMOXICILLIN TRIHYDRATE [Concomitant]
     Active Substance: AMOXICILLIN
  6. VITAMIN B COMPLEX [Concomitant]
     Active Substance: CYANOCOBALAMIN\DEXPANTHENOL\NIACINAMIDE\PYRIDOXINE HYDROCHLORIDE\RIBOFLAVIN 5^-PHOSPHATE SODIUM\THIA
  7. UTROGESTAN [Concomitant]
     Active Substance: PROGESTERONE
  8. PROGESTERONE [Concomitant]
     Active Substance: PROGESTERONE

REACTIONS (18)
  - Facial paralysis [Recovered/Resolved]
  - Dyspnoea [Recovered/Resolved]
  - Candida infection [Recovered/Resolved]
  - Pruritus [Recovered/Resolved]
  - Blister [Recovered/Resolved]
  - Swelling face [Recovering/Resolving]
  - Illness [Recovered/Resolved]
  - Mouth swelling [Recovered/Resolved]
  - Paraesthesia oral [Recovered/Resolved]
  - Paraesthesia oral [Recovered/Resolved]
  - Diarrhoea [Recovered/Resolved]
  - Swollen tongue [Recovered/Resolved]
  - Pharyngeal swelling [Recovering/Resolving]
  - Cough [Not Recovered/Not Resolved]
  - Malaise [Recovering/Resolving]
  - Swelling face [Recovering/Resolving]
  - Hyperaesthesia teeth [Recovered/Resolved]
  - Headache [Recovered/Resolved]
